FAERS Safety Report 8431497-8 (Version None)
Quarter: 2012Q2

REPORT INFORMATION
  Report Type: 
  Country: None (occurrence: None)
  Receive Date: 20120604
  Receipt Date: 20120508
  Transmission Date: 20120825
  Serious: Yes (Other)
  Sender: FDA-Public Use
  Company Number: 2012-00119

PATIENT
  Age: 81 Year
  Sex: Female
  Weight: 61.2356 kg

DRUGS (1)
  1. ZICAM COLD REMEDY PLUS RAPIDMELTS [Suspect]
     Indication: NASOPHARYNGITIS
     Dosage: 1 EVERY THREE HOURS
     Dates: start: 20120416, end: 20120420

REACTIONS (5)
  - EAR PAIN [None]
  - MIDDLE EAR EFFUSION [None]
  - OROPHARYNGEAL PAIN [None]
  - TYMPANIC MEMBRANE DISORDER [None]
  - DEAFNESS NEUROSENSORY [None]
